FAERS Safety Report 17601940 (Version 2)
Quarter: 2020Q3

REPORT INFORMATION
  Report Type: Report from Study
  Country: PA (occurrence: PA)
  Receive Date: 20200330
  Receipt Date: 20200407
  Transmission Date: 20201105
  Serious: Yes (Other)
  Sender: FDA-Public Use
  Company Number: NVSC2020PA068831

PATIENT
  Age: 15 Year
  Sex: Female
  Weight: 67 kg

DRUGS (5)
  1. SALBUTAMOL [Concomitant]
     Active Substance: ALBUTEROL
     Indication: ASTHMA
     Route: 065
  2. MOMETASONE [Concomitant]
     Active Substance: MOMETASONE
     Indication: PRODUCT USED FOR UNKNOWN INDICATION
     Route: 065
  3. EVEREST [Concomitant]
     Indication: ASTHMA
     Dosage: 5 MG, QD
     Route: 065
  4. SERETIDE [Concomitant]
     Active Substance: FLUTICASONE PROPIONATE\SALMETEROL XINAFOATE
     Indication: ASTHMA
     Dosage: UNK (PUFF)
     Route: 065
     Dates: start: 2014
  5. XOLAIR [Suspect]
     Active Substance: OMALIZUMAB
     Indication: ASTHMA
     Dosage: 450 MG, BIW
     Route: 065
     Dates: start: 20191203, end: 20200317

REACTIONS (12)
  - Asthmatic crisis [Not Recovered/Not Resolved]
  - Nasopharyngitis [Recovering/Resolving]
  - Cough [Recovering/Resolving]
  - Thermal burn [Recovered/Resolved]
  - Headache [Not Recovered/Not Resolved]
  - Contusion [Recovered/Resolved]
  - Urticaria [Not Recovered/Not Resolved]
  - Medication error [Recovered/Resolved]
  - Agitation [Recovering/Resolving]
  - Application site hypersensitivity [Recovered/Resolved]
  - Sneezing [Not Recovered/Not Resolved]
  - Hypersensitivity [Not Recovered/Not Resolved]

NARRATIVE: CASE EVENT DATE: 20200218
